FAERS Safety Report 17865681 (Version 1)
Quarter: 2020Q2

REPORT INFORMATION
  Report Type: Spontaneous
  Country: US (occurrence: US)
  Receive Date: 20200605
  Receipt Date: 20200605
  Transmission Date: 20200714
  Serious: Yes (Other)
  Sender: FDA-Public Use
  Company Number: US-NALPROPION PHARMACEUTICALS INC.-2020-010354

PATIENT
  Sex: Female

DRUGS (2)
  1. CONTRAVE [Suspect]
     Active Substance: BUPROPION HYDROCHLORIDE\NALTREXONE HYDROCHLORIDE
     Dosage: TWO TABLETS TWICE A DAY (STOPPED AT THE END OF 2017)
     Route: 048
     Dates: start: 2017, end: 2017
  2. CONTRAVE [Suspect]
     Active Substance: BUPROPION HYDROCHLORIDE\NALTREXONE HYDROCHLORIDE
     Indication: WEIGHT CONTROL
     Dosage: UNK
     Route: 048
     Dates: start: 2017, end: 2017

REACTIONS (5)
  - Back disorder [Recovering/Resolving]
  - Spinal compression fracture [Not Recovered/Not Resolved]
  - Nerve injury [Not Recovered/Not Resolved]
  - Accident at work [Unknown]
  - Pain in extremity [Recovered/Resolved]

NARRATIVE: CASE EVENT DATE: 2017
